FAERS Safety Report 6018357-7 (Version None)
Quarter: 2008Q4

REPORT INFORMATION
  Report Type: 
  Country: None (occurrence: None)
  Receive Date: 20081223
  Receipt Date: 20081212
  Transmission Date: 20090506
  Serious: Yes (Death, Hospitalization)
  Sender: FDA-Public Use
  Company Number: JP-PFIZER INC-2008152939

PATIENT

DRUGS (2)
  1. METHYLPREDNISOLONE AND METHYLPREDNISOLONE ACETATE AND METHYLPREDNISOLO [Suspect]
     Dosage: 500 MG, 1X/DAY
  2. PREDNISOLONE [Suspect]

REACTIONS (5)
  - ASCITES [None]
  - DISSEMINATED CRYPTOCOCCOSIS [None]
  - FUNGAEMIA [None]
  - PLEURAL EFFUSION [None]
  - RESPIRATORY FAILURE [None]
